FAERS Safety Report 19802231 (Version 1)
Quarter: 2021Q3

REPORT INFORMATION
  Report Type: Spontaneous
  Country: US (occurrence: US)
  Receive Date: 20210907
  Receipt Date: 20210907
  Transmission Date: 20211014
  Serious: Yes (Death)
  Sender: FDA-Public Use
  Company Number: None

PATIENT
  Age: 76 Year
  Sex: Female
  Weight: 160 kg

DRUGS (1)
  1. ALTEPLASE. [Suspect]
     Active Substance: ALTEPLASE
     Indication: CEREBROVASCULAR ACCIDENT
     Dosage: ?          OTHER FREQUENCY:ONCE;?
     Route: 042
     Dates: start: 20210829, end: 20210829

REACTIONS (5)
  - Pharyngeal haemorrhage [None]
  - Computerised tomogram abnormal [None]
  - Cerebrovascular accident [None]
  - Brain herniation [None]
  - Fall [None]

NARRATIVE: CASE EVENT DATE: 20210829
